FAERS Safety Report 8909270 (Version 1)
Quarter: 2012Q4

REPORT INFORMATION
  Report Type: Spontaneous
  Country: US (occurrence: None)
  Receive Date: 20121024
  Receipt Date: 20121024
  Transmission Date: 20130627
  Serious: Yes (Other)
  Sender: FDA-Public Use
  Company Number: 2012PROUSA02120

PATIENT
  Age: 60 Year
  Sex: Male
  Weight: 102 kg

DRUGS (6)
  1. PROVENGE (SIPULEUCEL-T) SUSPENSION, 250ML [Suspect]
     Indication: PROSTATE CANCER METASTATIC
     Route: 042
     Dates: start: 20120920, end: 20120920
  2. PROVENGE (SIPULEUCEL-T) SUSPENSION, 250ML [Suspect]
     Indication: PROSTATE CANCER METASTATIC
     Route: 042
     Dates: start: 20121004, end: 20121004
  3. IBUPROFEN [Concomitant]
  4. LORAZEPAM [Concomitant]
  5. HYDROCODONE (HYDROCODONE BITARTRATE) [Concomitant]
  6. LUPRON (LEUPRORELIN ACETATE) [Concomitant]

REACTIONS (2)
  - Hepatitis C [None]
  - Hepatic steatosis [None]
